FAERS Safety Report 9708246 (Version 1)
Quarter: 2013Q4

REPORT INFORMATION
  Report Type: Spontaneous
  Country: US (occurrence: US)
  Receive Date: 20131125
  Receipt Date: 20131125
  Transmission Date: 20140711
  Serious: No
  Sender: FDA-Public Use
  Company Number: US-TARO-2013P1002287

PATIENT
  Age: 65 Year
  Sex: Female
  Weight: 56.7 kg

DRUGS (2)
  1. CARBAMAZEPINE TABLETS USP 200 MG [Suspect]
     Indication: EPILEPSY
     Route: 048
     Dates: start: 2012, end: 20130212
  2. LAMOTRIGINE [Concomitant]
     Dates: start: 2004

REACTIONS (4)
  - Nausea [Recovered/Resolved]
  - Hunger [Recovered/Resolved]
  - Frequent bowel movements [Recovered/Resolved]
  - Product substitution issue [Not Recovered/Not Resolved]
